FAERS Safety Report 6736849-X (Version None)
Quarter: 2010Q2

REPORT INFORMATION
  Report Type: 
  Country: None (occurrence: None)
  Receive Date: 20100521
  Receipt Date: 20100514
  Transmission Date: 20101027
  Serious: Yes (Other)
  Sender: FDA-Public Use
  Company Number: US-AMGEN-QUU408164

PATIENT
  Sex: Female

DRUGS (1)
  1. EPOGEN [Suspect]
     Indication: DIALYSIS
     Dates: start: 19890101

REACTIONS (16)
  - CORONARY ARTERY BYPASS [None]
  - FOOT FRACTURE [None]
  - GAIT DISTURBANCE [None]
  - HIP FRACTURE [None]
  - HYPERTENSION [None]
  - HYPOTENSION [None]
  - INCREASED TENDENCY TO BRUISE [None]
  - INJECTION SITE PAIN [None]
  - INTESTINAL PERFORATION [None]
  - MUSCULAR WEAKNESS [None]
  - PELVIC FRACTURE [None]
  - POOR QUALITY SLEEP [None]
  - POSTURE ABNORMAL [None]
  - SKIN HAEMORRHAGE [None]
  - SKIN LACERATION [None]
  - UPPER LIMB FRACTURE [None]
